FAERS Safety Report 21916332 (Version 1)
Quarter: 2023Q1

REPORT INFORMATION
  Report Type: Spontaneous
  Country: NL (occurrence: NL)
  Receive Date: 20230126
  Receipt Date: 20230126
  Transmission Date: 20230417
  Serious: Yes (Life-Threatening)
  Sender: FDA-Public Use
  Company Number: None

PATIENT
  Sex: Male
  Weight: 125 kg

DRUGS (1)
  1. OLMESARTAN MEDOXOMIL [Suspect]
     Active Substance: OLMESARTAN MEDOXOMIL
     Indication: Hypertension
     Dosage: 40 MG, QD (1 UNIT 1 X PER DAY)
     Route: 065
     Dates: start: 20221010, end: 20230109

REACTIONS (2)
  - Fatigue [Recovering/Resolving]
  - Dyspnoea exertional [Recovering/Resolving]
